FAERS Safety Report 10160821 (Version 1)
Quarter: 2014Q2

REPORT INFORMATION
  Report Type: Spontaneous
  Country: US (occurrence: US)
  Receive Date: 20140508
  Receipt Date: 20140508
  Transmission Date: 20141212
  Serious: No
  Sender: FDA-Public Use
  Company Number: US-TEVA-480690USA

PATIENT
  Age: 28 Year
  Sex: Female
  Weight: 124.85 kg

DRUGS (4)
  1. PLAN B ONE-STEP [Suspect]
     Indication: POST COITAL CONTRACEPTION
     Dosage: 1.5 MILLIGRAM DAILY;
     Route: 048
     Dates: start: 20140411, end: 20140411
  2. PLAN B ONE-STEP [Suspect]
     Dosage: 1.5 MILLIGRAM DAILY;
     Route: 048
     Dates: start: 20140301, end: 20140301
  3. SUPPLEMENTS [Concomitant]
     Indication: NUTRITIONAL SUPPLEMENTATION
  4. ZYRTEC [Concomitant]
     Indication: HYPERSENSITIVITY

REACTIONS (1)
  - Menstruation irregular [Not Recovered/Not Resolved]
